FAERS Safety Report 25459611 (Version 2)
Quarter: 2025Q3

REPORT INFORMATION
  Report Type: Report from Study
  Country: US (occurrence: US)
  Receive Date: 20250620
  Receipt Date: 20250812
  Transmission Date: 20251021
  Serious: Yes (Death, Other)
  Sender: SUNOVION
  Company Number: US-SMPA-2025SPA006733AA

PATIENT
  Age: 77 Year
  Sex: Male

DRUGS (15)
  1. ORGOVYX [Suspect]
     Active Substance: RELUGOLIX
     Indication: Prostate cancer
     Route: 048
  2. ORGOVYX [Suspect]
     Active Substance: RELUGOLIX
     Dosage: 120 MG, QD
     Route: 048
  3. ACYCLOVIR [Concomitant]
     Active Substance: ACYCLOVIR
  4. BORTEZOMIB [Concomitant]
     Active Substance: BORTEZOMIB
  5. CALCIUM [Concomitant]
     Active Substance: CALCIUM
  6. DARZALEX [Concomitant]
     Active Substance: DARATUMUMAB
  7. DEXAMETHASONE [Concomitant]
     Active Substance: DEXAMETHASONE
  8. DULOXETINE [Concomitant]
     Active Substance: DULOXETINE
  9. ELIGARD [Concomitant]
     Active Substance: LEUPROLIDE ACETATE
     Route: 058
  10. GABAPENTIN [Concomitant]
     Active Substance: GABAPENTIN
  11. HEPARIN SODIUM [Concomitant]
     Active Substance: HEPARIN SODIUM
  12. SULFAMETHOXAZOLE AND TRIMETHOPRIM [Concomitant]
     Active Substance: SULFAMETHOXAZOLE\TRIMETHOPRIM
  13. XGEVA [Concomitant]
     Active Substance: DENOSUMAB
     Route: 058
  14. SODIUM CHLORIDE [Concomitant]
     Active Substance: SODIUM CHLORIDE
  15. SODIUM CHLORIDE [Concomitant]
     Active Substance: SODIUM CHLORIDE

REACTIONS (2)
  - Death [Fatal]
  - Fatigue [Unknown]
